FAERS Safety Report 5965142-8 (Version None)
Quarter: 2008Q4

REPORT INFORMATION
  Report Type: 
  Country: None (occurrence: None)
  Receive Date: 20081121
  Receipt Date: 20081121
  Transmission Date: 20090506
  Serious: Yes (Life-Threatening, Hospitalization)
  Sender: FDA-Public Use
  Company Number: None

PATIENT
  Age: 32 Year
  Sex: Female
  Weight: 62.5964 kg

DRUGS (1)
  1. MIRENA [Suspect]
     Indication: CONTRACEPTION
     Dates: start: 20070524, end: 20080715

REACTIONS (9)
  - ANAEMIA [None]
  - BACTERIAL INFECTION [None]
  - CERVIX DISORDER [None]
  - CHILLS [None]
  - GRANULOMA [None]
  - HEPATIC LESION [None]
  - LUNG NEOPLASM [None]
  - NIGHT SWEATS [None]
  - PYREXIA [None]
